FAERS Safety Report 6070764-2 (Version None)
Quarter: 2009Q1

REPORT INFORMATION
  Report Type: 
  Country: None (occurrence: None)
  Receive Date: 20090209
  Receipt Date: 20090130
  Transmission Date: 20090719
  Serious: Yes (Death)
  Sender: FDA-Public Use
  Company Number: US-TYCO HEALTHCARE/MALLINCKRODT-T200900199

PATIENT
  Age: 61 Year
  Sex: Female

DRUGS (8)
  1. OXYCODONE HCL [Suspect]
  2. ACETAMINOPHEN AND CODEINE PHOSPHATE [Suspect]
  3. ESCITALOPRAM [Suspect]
  4. LEVOTHYROXINE SODIUM [Suspect]
  5. THIAZIDES [Suspect]
  6. ACETAMINOPHEN W/DIPHENHYDRAMINE HYDROCHLORIDE [Suspect]
  7. ESTRADIOL [Suspect]
  8. PROGESTERONE [Suspect]

REACTIONS (1)
  - COMPLETED SUICIDE [None]
